FAERS Safety Report 11222955 (Version 2)
Quarter: 2015Q3

REPORT INFORMATION
  Report Type: Report from Study
  Country: US (occurrence: US)
  Receive Date: 20150626
  Receipt Date: 20150812
  Transmission Date: 20151125
  Serious: Yes (Hospitalization, Other)
  Sender: FDA-Public Use
  Company Number: US-B.I. PHARMACEUTICALS,INC./RIDGEFIELD-2015-BI-32859BP

PATIENT
  Age: 70 Year
  Sex: Female

DRUGS (12)
  1. CALCIUM 500+D (D3) [Concomitant]
     Indication: PRODUCT USED FOR UNKNOWN INDICATION
     Dosage: 2 ANZ
     Route: 065
     Dates: start: 20120717
  2. ASMANEX [Concomitant]
     Active Substance: MOMETASONE FUROATE
     Indication: PRODUCT USED FOR UNKNOWN INDICATION
     Dosage: 2 ANZ
     Route: 065
     Dates: start: 20140605
  3. NASONEX [Concomitant]
     Active Substance: MOMETASONE FUROATE
     Indication: PRODUCT USED FOR UNKNOWN INDICATION
     Dosage: 2 ANZ
     Route: 050
     Dates: start: 20140207
  4. VITAMIN D2 [Concomitant]
     Active Substance: ERGOCALCIFEROL
     Indication: PRODUCT USED FOR UNKNOWN INDICATION
     Dosage: STRENGTH: 50,000 UNIT, DOSE PER APP + DAILY DOSE: U
     Route: 065
     Dates: start: 20130730
  5. OFEV [Suspect]
     Active Substance: NINTEDANIB
     Dosage: 150 MG
     Route: 048
  6. SYNTHROID [Concomitant]
     Active Substance: LEVOTHYROXINE SODIUM
     Indication: PRODUCT USED FOR UNKNOWN INDICATION
     Dosage: 100 MCG
     Route: 065
     Dates: start: 20130730
  7. OFEV [Suspect]
     Active Substance: NINTEDANIB
     Route: 065
  8. SIMVASTATIN. [Concomitant]
     Active Substance: SIMVASTATIN
     Indication: PRODUCT USED FOR UNKNOWN INDICATION
     Dosage: 1 MG
     Route: 065
     Dates: start: 20140605
  9. VESICARE [Concomitant]
     Active Substance: SOLIFENACIN SUCCINATE
     Indication: PRODUCT USED FOR UNKNOWN INDICATION
     Dosage: 5 MG
     Route: 048
  10. OFEV [Suspect]
     Active Substance: NINTEDANIB
     Indication: IDIOPATHIC PULMONARY FIBROSIS
     Dosage: 300 MG
     Route: 048
     Dates: start: 20150414
  11. PROLIA [Concomitant]
     Active Substance: DENOSUMAB
     Indication: PRODUCT USED FOR UNKNOWN INDICATION
     Dosage: STRENGTH: 60MG/ML, FORMULATION: SYRINGE, DOSE PER APP + DAILY DOSE: MG/ML INJECTION Q6 MONTHS
     Route: 058
     Dates: start: 20140605
  12. ZITHROMAX [Concomitant]
     Active Substance: AZITHROMYCIN DIHYDRATE
     Indication: PRODUCT USED FOR UNKNOWN INDICATION
     Dosage: 500 MG
     Route: 048
     Dates: start: 20150626

REACTIONS (4)
  - Tremor [Unknown]
  - Dyspnoea [Unknown]
  - Anxiety [Unknown]
  - Interstitial lung disease [Unknown]

NARRATIVE: CASE EVENT DATE: 20150420
